FAERS Safety Report 15073911 (Version 1)
Quarter: 2018Q2

REPORT INFORMATION
  Report Type: Spontaneous
  Country: US (occurrence: US)
  Receive Date: 20180606
  Receipt Date: 20180606
  Transmission Date: 20180711
  Serious: Yes (Other)
  Sender: FDA-Public Use
  Company Number: None

PATIENT
  Sex: Female
  Weight: 70.65 kg

DRUGS (10)
  1. IBUPROFEN. [Concomitant]
     Active Substance: IBUPROFEN
  2. ZOFRAN [Concomitant]
     Active Substance: ONDANSETRON HYDROCHLORIDE
  3. FENTANYL. [Concomitant]
     Active Substance: FENTANYL
  4. IBRANCE [Suspect]
     Active Substance: PALBOCICLIB
     Indication: BREAST CANCER
     Route: 048
     Dates: start: 20180313
  5. OXYCODONE [Concomitant]
     Active Substance: OXYCODONE
  6. XANAX [Concomitant]
     Active Substance: ALPRAZOLAM
  7. VITAMIN D [Concomitant]
     Active Substance: CHOLECALCIFEROL
  8. EFFEXOR [Concomitant]
     Active Substance: VENLAFAXINE HYDROCHLORIDE
  9. AMBIEN [Concomitant]
     Active Substance: ZOLPIDEM TARTRATE
  10. FASLODEX [Concomitant]
     Active Substance: FULVESTRANT

REACTIONS (1)
  - Leukopenia [None]
